FAERS Safety Report 12346245 (Version 1)
Quarter: 2016Q2

REPORT INFORMATION
  Report Type: Spontaneous
  Country: US (occurrence: None)
  Receive Date: 20160506
  Receipt Date: 20160506
  Transmission Date: 20160815
  Serious: No
  Sender: FDA-Public Use
  Company Number: None

PATIENT
  Sex: Female

DRUGS (18)
  1. LISINOPRIL. [Concomitant]
     Active Substance: LISINOPRIL
  2. AMLODIPINE [Concomitant]
     Active Substance: AMLODIPINE BESYLATE
  3. FLONASE [Concomitant]
     Active Substance: FLUTICASONE PROPIONATE
  4. CENTRUM [Concomitant]
     Active Substance: VITAMINS
  5. VITAMIN C [Concomitant]
     Active Substance: ASCORBIC ACID
  6. NAPROXEN. [Concomitant]
     Active Substance: NAPROXEN
  7. LORTAB [Concomitant]
     Active Substance: ACETAMINOPHEN\HYDROCODONE BITARTRATE
  8. CRESTOR [Concomitant]
     Active Substance: ROSUVASTATIN CALCIUM
  9. ZINC [Concomitant]
     Active Substance: ZINC\ZINC CHLORIDE
  10. ENBREL [Suspect]
     Active Substance: ETANERCEPT
     Indication: RHEUMATOID ARTHRITIS
     Route: 058
     Dates: start: 20120724
  11. PREMARIN [Concomitant]
     Active Substance: ESTROGENS, CONJUGATED
  12. SINGULAIR [Concomitant]
     Active Substance: MONTELUKAST SODIUM
  13. FISH OIL [Concomitant]
     Active Substance: FISH OIL
  14. ZYPREXA [Concomitant]
     Active Substance: OLANZAPINE
  15. KLONOPIN [Concomitant]
     Active Substance: CLONAZEPAM
  16. CALCIUM [Concomitant]
     Active Substance: CALCIUM
  17. SYNTHROID [Concomitant]
     Active Substance: LEVOTHYROXINE SODIUM
  18. FOLIC ACID. [Concomitant]
     Active Substance: FOLIC ACID

REACTIONS (4)
  - Joint injury [None]
  - Fall [None]
  - Limb injury [None]
  - Drug dose omission [None]

NARRATIVE: CASE EVENT DATE: 2016
